FAERS Safety Report 14855948 (Version 2)
Quarter: 2018Q2

REPORT INFORMATION
  Report Type: Report from Study
  Country: US (occurrence: US)
  Receive Date: 20180507
  Receipt Date: 20180510
  Transmission Date: 20180711
  Serious: Yes (Other)
  Sender: FDA-Public Use
  Company Number: US-ACTELION-A-US2018-171516

PATIENT
  Age: 38 Year
  Sex: Female

DRUGS (2)
  1. UPTRAVI [Suspect]
     Active Substance: SELEXIPAG
     Indication: PULMONARY ARTERIAL HYPERTENSION
     Dosage: 200 MCG, BID
     Route: 048
  2. UPTRAVI [Suspect]
     Active Substance: SELEXIPAG
     Dosage: 400 MCG, BID
     Route: 048
     Dates: start: 20180415

REACTIONS (4)
  - Flushing [Unknown]
  - Blood sodium decreased [Unknown]
  - Nausea [Unknown]
  - Dehydration [Unknown]
